FAERS Safety Report 24712210 (Version 3)
Quarter: 2025Q1

REPORT INFORMATION
  Report Type: Spontaneous
  Country: US (occurrence: US)
  Receive Date: 20241209
  Receipt Date: 20250116
  Transmission Date: 20250409
  Serious: Yes (Hospitalization)
  Sender: PFIZER
  Company Number: US-PFIZER INC-202400319401

PATIENT
  Age: 83 Year
  Sex: Male
  Weight: 104.33 kg

DRUGS (13)
  1. VYNDAMAX [Suspect]
     Active Substance: TAFAMIDIS
     Indication: Cardiac amyloidosis
     Dosage: 1 CAP(S) ORALLY ONCE A DAY (AT BEDTIME)
     Route: 048
     Dates: start: 201504
  2. CITALOPRAM [Concomitant]
     Active Substance: CITALOPRAM
     Dosage: 1TAB(S) ORALLY ONCE A DAY
     Route: 048
  3. COENZYME Q10 [Concomitant]
     Active Substance: DIETARY SUPPLEMENT\UBIDECARENONE
     Dosage: 1 CAP(S) ORALLY ONCE A DAY (AT BEDTIME)
     Route: 048
  4. DOXAZOSIN [Concomitant]
     Active Substance: DOXAZOSIN MESYLATE
     Dosage: 1 TAB(S) ORALLY ONCE A DAY (AT BEDTIME)
     Route: 048
  5. ELIQUIS [Concomitant]
     Active Substance: APIXABAN
     Dosage: 1 TAB(S) ORALLY 2 TIMES A DAY
     Route: 048
  6. LEVOTHYROXINE [Concomitant]
     Active Substance: LEVOTHYROXINE
     Dosage: 1 TAB(S) ORALLY ONCE A DAY
     Route: 048
  7. LORAZEPAM [Concomitant]
     Active Substance: LORAZEPAM
     Dosage: 1 TAB(S) ORALLY ONCE A DAY (AT BEDTIME)
     Route: 048
  8. POTASSIUM CHLORIDE [Concomitant]
     Active Substance: POTASSIUM CHLORIDE
     Dosage: 1 TAB(S) ORALLY ONCE A DAY
     Route: 048
  9. PRAVASTATIN [Concomitant]
     Active Substance: PRAVASTATIN
     Dosage: 1 TAB(S) ORALLY ONCE A DAY (AT BEDTIME)
     Route: 048
  10. OMEPRAZOLE [Concomitant]
     Active Substance: OMEPRAZOLE
     Dosage: 1 TAB(S) ORALLY ONCE A DAY
     Route: 048
  11. SPIRONOLACTONE [Concomitant]
     Active Substance: SPIRONOLACTONE
     Dosage: 0.5 TAB(S) ORALLY ONCE A DAY
     Route: 048
  12. TORSEMIDE [Concomitant]
     Active Substance: TORSEMIDE
     Dosage: 1 TAB(S) ORALLY ONCE A DAY
     Route: 048
  13. VALSARTAN [Concomitant]
     Active Substance: VALSARTAN
     Dosage: 1 TAB(S) ORALLY ONCE A DAY (AT BEDTIME)
     Route: 048

REACTIONS (4)
  - Fall [Recovered/Resolved]
  - Dehydration [Recovered/Resolved]
  - Blood pressure decreased [Recovered/Resolved]
  - Balance disorder [Recovered/Resolved]

NARRATIVE: CASE EVENT DATE: 20241101
